FAERS Safety Report 10069713 (Version 1)
Quarter: 2014Q2

REPORT INFORMATION
  Report Type: Spontaneous
  Country: US (occurrence: None)
  Receive Date: 20140409
  Receipt Date: 20140409
  Transmission Date: 20141212
  Serious: Yes (Other)
  Sender: FDA-Public Use
  Company Number: None

PATIENT
  Age: 29 Year
  Sex: Female
  Weight: 114.31 kg

DRUGS (1)
  1. PERCOCET [Suspect]
     Indication: TOOTH EXTRACTION
     Dosage: 1 PILL, EVERY 6 HOURS, TAKEN BY MOUTH
     Route: 048
     Dates: start: 20140404, end: 20140408

REACTIONS (1)
  - Blood glucose increased [None]
